FAERS Safety Report 10086600 (Version 1)
Quarter: 2014Q2

REPORT INFORMATION
  Report Type: Spontaneous
  Country: BR (occurrence: BR)
  Receive Date: 20140418
  Receipt Date: 20140418
  Transmission Date: 20141212
  Serious: Yes (Other)
  Sender: FDA-Public Use
  Company Number: BR-PFIZER INC-2014105163

PATIENT
  Age: 46 Year
  Sex: Female
  Weight: 66 kg

DRUGS (1)
  1. LYRICA [Suspect]
     Indication: POSTOPERATIVE HERNIA
     Dosage: 75 MG, 2X/DAY
     Route: 048
     Dates: start: 20130510

REACTIONS (1)
  - Intervertebral disc protrusion [Unknown]
